FAERS Safety Report 8777756 (Version 2)
Quarter: 2012Q4

REPORT INFORMATION
  Report Type: 
  Country: FR (occurrence: FR)
  Receive Date: 20120911
  Receipt Date: 20120921
  Transmission Date: 20130627
  Serious: Yes (Other)
  Sender: FDA-Public Use
  Company Number: PHHY2012FR078541

PATIENT
  Sex: Female

DRUGS (4)
  1. FEMARA [Suspect]
     Indication: BREAST CANCER
  2. SEROPLEX [Suspect]
     Indication: DEPRESSION
     Dosage: 5 mg, daily
     Dates: start: 201207
  3. FENOFIBRATE [Concomitant]
     Indication: HYPERCHOLESTEROLAEMIA
  4. SEVIKAR [Concomitant]
     Indication: HYPERTENSION

REACTIONS (5)
  - Suicidal ideation [Unknown]
  - Dyskinesia [Unknown]
  - Depression [Not Recovered/Not Resolved]
  - Concomitant disease progression [Not Recovered/Not Resolved]
  - Restless legs syndrome [Recovering/Resolving]
